FAERS Safety Report 4821977-6 (Version None)
Quarter: 2005Q4

REPORT INFORMATION
  Report Type: 
  Country: None (occurrence: None)
  Receive Date: 20051103
  Receipt Date: 20051019
  Transmission Date: 20060501
  Serious: Yes (Hospitalization)
  Sender: FDA-Public Use
  Company Number: GBS050818197

PATIENT
  Age: 9 Year
  Sex: Male
  Weight: 33 kg

DRUGS (4)
  1. STRATTERA [Suspect]
     Indication: ATTENTION DEFICIT/HYPERACTIVITY DISORDER
     Dosage: 18 MG
     Dates: start: 20080629, end: 20050803
  2. STRATTERA [Suspect]
     Indication: DECREASED APPETITE
     Dosage: 18 MG
     Dates: start: 20080629, end: 20050803
  3. STRATTERA [Suspect]
     Indication: SLEEP DISORDER
     Dosage: 18 MG
     Dates: start: 20080629, end: 20050803
  4. MELATONIN [Concomitant]

REACTIONS (14)
  - AMNESIA [None]
  - BLOOD PRESSURE ORTHOSTATIC DECREASED [None]
  - DEPRESSED LEVEL OF CONSCIOUSNESS [None]
  - DRUG DISPENSING ERROR [None]
  - EXTRASYSTOLES [None]
  - FALL [None]
  - HEART RATE DECREASED [None]
  - HEART RATE INCREASED [None]
  - SINUS ARRHYTHMIA [None]
  - SOMNOLENCE [None]
  - SYNCOPE VASOVAGAL [None]
  - UNDERDOSE [None]
  - VIRAL INFECTION [None]
  - WEIGHT DECREASED [None]
